FAERS Safety Report 10102670 (Version 2)
Quarter: 2014Q2

REPORT INFORMATION
  Report Type: Spontaneous
  Country: FR (occurrence: FR)
  Receive Date: 20140424
  Receipt Date: 20140424
  Transmission Date: 20141212
  Serious: Yes (Other)
  Sender: FDA-Public Use
  Company Number: FR-009507513-1403FRA003418

PATIENT
  Age: 33 Year
  Sex: Male

DRUGS (6)
  1. MK-7243 [Suspect]
     Dosage: UNK
     Route: 060
     Dates: start: 20140102, end: 20140204
  2. SERETIDE [Concomitant]
     Route: 065
  3. ALBUTEROL [Concomitant]
     Route: 065
  4. KESTIN [Concomitant]
     Route: 065
  5. CROMOLYN SODIUM [Concomitant]
     Route: 065
  6. SLITONE [Concomitant]

REACTIONS (3)
  - Diarrhoea haemorrhagic [Recovered/Resolved]
  - Proctalgia [Recovered/Resolved]
  - Abdominal pain upper [Recovered/Resolved]
